FAERS Safety Report 23118015 (Version 2)
Quarter: 2023Q4

REPORT INFORMATION
  Report Type: Spontaneous
  Country: US (occurrence: US)
  Receive Date: 20231027
  Receipt Date: 20231115
  Transmission Date: 20240110
  Serious: No
  Sender: FDA-Public Use
  Company Number: US-PFIZER INC-202300341260

PATIENT

DRUGS (3)
  1. PAXLOVID [Suspect]
     Active Substance: NIRMATRELVIR\RITONAVIR
  2. EZETIMIBE [Suspect]
     Active Substance: EZETIMIBE
  3. ZETIA [Suspect]
     Active Substance: EZETIMIBE

REACTIONS (1)
  - Dysgeusia [Unknown]
